FAERS Safety Report 16751006 (Version 1)
Quarter: 2019Q3

REPORT INFORMATION
  Report Type: Spontaneous
  Country: GB (occurrence: GB)
  Receive Date: 20190828
  Receipt Date: 20190828
  Transmission Date: 20191005
  Serious: Yes (Other)
  Sender: FDA-Public Use
  Company Number: GB-JNJFOC-20190823022

PATIENT
  Age: 58 Year
  Sex: Female
  Weight: 57.15 kg

DRUGS (1)
  1. OVEX [Suspect]
     Active Substance: MEBENDAZOLE
     Indication: ENTEROBIASIS
     Route: 048
     Dates: start: 20190301, end: 20190314

REACTIONS (5)
  - Erythema [Recovering/Resolving]
  - Rash papular [Recovering/Resolving]
  - Platelet count decreased [Recovered/Resolved]
  - Palpitations [Recovering/Resolving]
  - Contusion [Recovering/Resolving]

NARRATIVE: CASE EVENT DATE: 201903
